FAERS Safety Report 8173745-8 (Version None)
Quarter: 2012Q1

REPORT INFORMATION
  Report Type: 
  Country: None (occurrence: None)
  Receive Date: 20120229
  Receipt Date: 20110919
  Transmission Date: 20120608
  Serious: Yes (Death, Hospitalization)
  Sender: FDA-Public Use
  Company Number: FR-BAYER-2011-019692

PATIENT
  Age: 64 Year
  Sex: Male

DRUGS (17)
  1. SORAFENIB (RAF KINASE INHIBITOR) [Suspect]
     Dosage: 400 MG, BID
     Route: 048
     Dates: start: 20110207, end: 20110227
  2. ACETAMINOPHEN [Concomitant]
     Indication: HEADACHE
     Dosage: 4-6 TABLETS AS NEEDES
     Dates: start: 20110203, end: 20110228
  3. BISOPROLOL FUMARATE [Concomitant]
     Indication: HYPERTENSION
     Dosage: DAILY DOSE 5 MG
     Dates: start: 20110203, end: 20110228
  4. SORAFENIB (RAF KINASE INHIBITOR) [Suspect]
     Indication: HEPATIC NEOPLASM MALIGNANT
     Dosage: 200 MG, QD
     Route: 048
     Dates: start: 20110118, end: 20110201
  5. SORAFENIB (RAF KINASE INHIBITOR) [Suspect]
     Dosage: 0 MG, SUBJECT ERROR
     Route: 048
     Dates: start: 20110202, end: 20110202
  6. SORAFENIB (RAF KINASE INHIBITOR) [Suspect]
     Dosage: 400 MG, BID
     Route: 048
     Dates: start: 20110203, end: 20110206
  7. SORAFENIB (RAF KINASE INHIBITOR) [Suspect]
     Dosage: 0 MG
     Route: 048
     Dates: start: 20110228, end: 20110310
  8. ZOPICLONE [Concomitant]
     Indication: INSOMNIA
     Dosage: 1 DF, QD
     Dates: start: 20110203, end: 20110228
  9. PLACEBO [Suspect]
     Indication: HEPATIC NEOPLASM MALIGNANT
     Dosage: 600 MG, QD
     Route: 048
     Dates: start: 20110118, end: 20110201
  10. PLACEBO [Suspect]
     Dosage: 0 MG, SUBJECT ERROR
     Route: 048
     Dates: start: 20110202, end: 20110202
  11. PLACEBO [Suspect]
     Dosage: 150 MG, QD
     Route: 048
     Dates: start: 20110207, end: 20110227
  12. DIAMICRON [Concomitant]
     Indication: DIABETES MELLITUS
     Dosage: DAILY DOSE 60 MG
     Dates: start: 20101120, end: 20110310
  13. PLACEBO [Suspect]
     Dosage: 150 MG, QD
     Route: 048
     Dates: start: 20110203, end: 20110206
  14. PLACEBO [Suspect]
     Dosage: 0 MG
     Route: 048
     Dates: start: 20110228, end: 20110310
  15. FUROSEMIDE [Concomitant]
     Indication: HYPERTENSION
     Dosage: DAILY DOSE 40 MG
     Dates: start: 20000101, end: 20110228
  16. CANDESARTAN CILEXETIL AND HYDROCHLOROTHIAZIDE [Concomitant]
     Indication: HYPERTENSION
     Dosage: DAILY DOSE 16 MG
     Dates: start: 20000101, end: 20110228
  17. ACETAMINOPHEN [Concomitant]
     Indication: PAIN

REACTIONS (2)
  - GASTROINTESTINAL FISTULA [None]
  - SEPSIS [None]
